FAERS Safety Report 10480553 (Version 4)
Quarter: 2015Q1

REPORT INFORMATION
  Report Type: Report from Study
  Country: US (occurrence: US)
  Receive Date: 20140929
  Receipt Date: 20150310
  Transmission Date: 20150720
  Serious: Yes (Other)
  Sender: FDA-Public Use
  Company Number: US-BAYER-2014-129513

PATIENT
  Age: 60 Year
  Sex: Female
  Weight: 63 kg

DRUGS (7)
  1. ADEMPAS [Suspect]
     Active Substance: RIOCIGUAT
     Indication: PULMONARY ARTERIAL HYPERTENSION
     Dosage: 1 MG, BID
     Route: 048
  2. ADEMPAS [Suspect]
     Active Substance: RIOCIGUAT
     Indication: PULMONARY ARTERIAL HYPERTENSION
     Dosage: 0.5 MG, TID
     Route: 048
  3. LISINOPRIL. [Concomitant]
     Active Substance: LISINOPRIL
     Dosage: 5 MG DAILY
  4. ADEMPAS [Suspect]
     Active Substance: RIOCIGUAT
     Indication: PULMONARY ARTERIAL HYPERTENSION
     Dosage: 0.5 MG, BID
     Route: 048
     Dates: start: 20140731, end: 20140825
  5. MACITENTAN [Concomitant]
     Active Substance: MACITENTAN
     Dosage: 10 MG DAILY
  6. DIGOXIN. [Concomitant]
     Active Substance: DIGOXIN
     Dosage: 0.125 MG DAILY
  7. TYVASO [Concomitant]
     Active Substance: TREPROSTINIL
     Indication: COR PULMONALE CHRONIC
     Dosage: 54 ?G, QID (9 BREATHS QID)
     Route: 055
     Dates: start: 20140201

REACTIONS (15)
  - Dyspnoea [None]
  - Nausea [None]
  - Secretion discharge [None]
  - Constipation [None]
  - Chest discomfort [None]
  - Abdominal distension [None]
  - Dyspepsia [None]
  - Chest discomfort [None]
  - Headache [None]
  - Angina unstable [None]
  - Adverse drug reaction [None]
  - Epistaxis [None]
  - Chest discomfort [None]
  - Gastrooesophageal reflux disease [None]
  - Chest pain [None]

NARRATIVE: CASE EVENT DATE: 20140814
